FAERS Safety Report 11599695 (Version 2)
Quarter: 2015Q4

REPORT INFORMATION
  Report Type: Spontaneous
  Country: US (occurrence: US)
  Receive Date: 20151006
  Receipt Date: 20151201
  Transmission Date: 20160304
  Serious: Yes (Other)
  Sender: FDA-Public Use
  Company Number: US-JAZZ-2015-US-015448

PATIENT
  Age: 68 Year
  Sex: Female
  Weight: 63 kg

DRUGS (19)
  1. NEXIUM [Concomitant]
     Active Substance: ESOMEPRAZOLE MAGNESIUM
     Indication: GASTROOESOPHAGEAL REFLUX DISEASE
     Dosage: UNK
     Dates: start: 20150827
  2. LIDOCAINE. [Concomitant]
     Active Substance: LIDOCAINE
     Indication: PRODUCT USED FOR UNKNOWN INDICATION
     Dosage: UNK
     Dates: start: 20150827
  3. XYREM [Suspect]
     Active Substance: SODIUM OXYBATE
     Indication: HYPOSOMNIA
     Dosage: 2.25 G, BID
     Route: 048
     Dates: start: 20150926, end: 20150927
  4. COZAAR [Concomitant]
     Active Substance: LOSARTAN POTASSIUM
     Indication: BLOOD PRESSURE MEASUREMENT
     Dosage: 50 MG, QD
     Route: 048
     Dates: start: 20150827
  5. BENTYL [Concomitant]
     Active Substance: DICYCLOMINE HYDROCHLORIDE
     Indication: MUSCLE SPASMS
     Dosage: UNK
     Dates: start: 20150921
  6. DOXYCYCLINE HYCLATE DR [Concomitant]
     Indication: PRODUCT USED FOR UNKNOWN INDICATION
     Dosage: UNK
     Dates: start: 20150827
  7. XYREM [Suspect]
     Active Substance: SODIUM OXYBATE
     Dosage: 2.25 G, BID (ONCE IN THREE DAYS)
     Route: 048
     Dates: start: 2015
  8. SUCRALFATE. [Concomitant]
     Active Substance: SUCRALFATE
     Indication: IMPAIRED GASTRIC EMPTYING
     Dosage: UNK
     Dates: start: 20150827
  9. SYNTHROID [Concomitant]
     Active Substance: LEVOTHYROXINE SODIUM
     Indication: HYPOTHYROIDISM
     Dosage: UNK
     Dates: start: 20150827
  10. PROMETHAZINE [Concomitant]
     Active Substance: PROMETHAZINE\PROMETHAZINE HYDROCHLORIDE
     Indication: PANCREATITIS
     Dosage: 25 MG, PRN
     Dates: start: 20150827
  11. ZOLOFT [Concomitant]
     Active Substance: SERTRALINE HYDROCHLORIDE
     Indication: PANIC ATTACK
     Dosage: UNK
     Dates: start: 20150921
  12. DOMPERIDONE [Concomitant]
     Active Substance: DOMPERIDONE
     Indication: PANCREATITIS
     Dosage: UNK
     Dates: start: 20150921
  13. AMOXICILLIN. [Concomitant]
     Active Substance: AMOXICILLIN
     Indication: EUSTACHIAN TUBE OBSTRUCTION
  14. AMITIZA [Concomitant]
     Active Substance: LUBIPROSTONE
     Indication: PRODUCT USED FOR UNKNOWN INDICATION
     Dosage: UNK
     Dates: start: 20150921
  15. DOMPERIDONE [Concomitant]
     Active Substance: DOMPERIDONE
     Indication: NAUSEA
  16. AMOXICILLIN. [Concomitant]
     Active Substance: AMOXICILLIN
     Indication: EAR PAIN
     Dosage: UNK
     Dates: start: 201508
  17. AMOXICILLIN. [Concomitant]
     Active Substance: AMOXICILLIN
     Indication: NONINFECTIVE SIALOADENITIS
  18. PROMETHAZINE [Concomitant]
     Active Substance: PROMETHAZINE\PROMETHAZINE HYDROCHLORIDE
     Indication: NAUSEA
  19. HYDROCODONE BITARTRATE AND ACETAMINOPHEN [Concomitant]
     Active Substance: ACETAMINOPHEN\HYDROCODONE BITARTRATE
     Indication: PRODUCT USED FOR UNKNOWN INDICATION
     Dosage: UNK
     Dates: start: 20150827

REACTIONS (2)
  - Pancreatitis [Not Recovered/Not Resolved]
  - Drug ineffective for unapproved indication [Unknown]

NARRATIVE: CASE EVENT DATE: 20150926
